FAERS Safety Report 24190034 (Version 1)
Quarter: 2024Q3

REPORT INFORMATION
  Report Type: Spontaneous
  Country: ZA (occurrence: ZA)
  Receive Date: 20240808
  Receipt Date: 20240808
  Transmission Date: 20241017
  Serious: Yes (Death)
  Sender: ROCHE
  Company Number: ZA-ROCHE-10000052047

PATIENT

DRUGS (1)
  1. KADCYLA [Suspect]
     Active Substance: ADO-TRASTUZUMAB EMTANSINE
     Indication: HER2 positive breast cancer
     Dosage: 2 CYCLES
     Route: 065

REACTIONS (1)
  - Death [Fatal]
